FAERS Safety Report 6903270-0 (Version None)
Quarter: 2010Q3

REPORT INFORMATION
  Report Type: 
  Country: None (occurrence: None)
  Receive Date: 20100803
  Receipt Date: 20080712
  Transmission Date: 20110219
  Serious: No
  Sender: FDA-Public Use
  Company Number: US-PFIZER INC-2008023040

PATIENT
  Age: 73 Year
  Sex: Female
  Weight: 73 kg

DRUGS (5)
  1. LYRICA [Suspect]
     Indication: BACK DISORDER
     Dates: start: 20070101, end: 20080201
  2. LEVOTHYROXINE [Concomitant]
  3. PROTONIX [Concomitant]
  4. NORTRIPTYLINE [Concomitant]
  5. NORVASC [Concomitant]

REACTIONS (5)
  - BALANCE DISORDER [None]
  - DRUG INEFFECTIVE [None]
  - GAIT DISTURBANCE [None]
  - VISION BLURRED [None]
  - WEIGHT INCREASED [None]
